FAERS Safety Report 9931481 (Version 1)
Quarter: 2014Q1

REPORT INFORMATION
  Report Type: Spontaneous
  Country: DE (occurrence: DE)
  Receive Date: 20140228
  Receipt Date: 20140228
  Transmission Date: 20141002
  Serious: Yes (Hospitalization)
  Sender: FDA-Public Use
  Company Number: DE-ROCHE-1355531

PATIENT
  Age: 71 Year
  Sex: Female

DRUGS (1)
  1. ROACTEMRA [Suspect]
     Indication: POLYARTHRITIS
     Route: 065

REACTIONS (2)
  - Multifocal motor neuropathy [Unknown]
  - Monoparesis [Recovering/Resolving]
